FAERS Safety Report 10984519 (Version 1)
Quarter: 2015Q2

REPORT INFORMATION
  Report Type: Spontaneous
  Country: IT (occurrence: IT)
  Receive Date: 20150403
  Receipt Date: 20150403
  Transmission Date: 20150821
  Serious: Yes (Death)
  Sender: FDA-Public Use
  Company Number: IT-ASTRAZENECA-2015SE31212

PATIENT
  Age: 72 Year
  Sex: Female

DRUGS (20)
  1. GENTAMICIN. [Concomitant]
     Active Substance: GENTAMICIN
  2. FLUCONAZOLE. [Concomitant]
     Active Substance: FLUCONAZOLE
  3. RANITIDINE [Concomitant]
     Active Substance: RANITIDINE\RANITIDINE HYDROCHLORIDE
  4. PIPERACILLIN/TAZOBACTAM [Suspect]
     Active Substance: PIPERACILLIN SODIUM\TAZOBACTAM SODIUM
     Indication: ANTIBIOTIC THERAPY
     Route: 065
  5. ENOXAPARIN SODIUM. [Concomitant]
     Active Substance: ENOXAPARIN SODIUM
  6. ONDANSETRON [Concomitant]
     Active Substance: ONDANSETRON
  7. ASPIRIN. [Concomitant]
     Active Substance: ASPIRIN
  8. METRONIDAZOLE. [Concomitant]
     Active Substance: METRONIDAZOLE
  9. TELMISARTAN. [Concomitant]
     Active Substance: TELMISARTAN
  10. OMEPRAZOLE. [Concomitant]
     Active Substance: OMEPRAZOLE
  11. HYDROCORTISONE. [Concomitant]
     Active Substance: HYDROCORTISONE
  12. CEFTRIAXON [Suspect]
     Active Substance: CEFTRIAXONE
     Indication: ANTIBIOTIC THERAPY
     Route: 065
  13. METHYLPREDNISOLONE. [Concomitant]
     Active Substance: METHYLPREDNISOLONE
  14. TIGECYCLINE [Concomitant]
     Active Substance: TIGECYCLINE
  15. MEROPENEM. [Suspect]
     Active Substance: MEROPENEM
     Indication: ANTIBIOTIC THERAPY
     Route: 042
  16. SPIRONOLACTONE. [Concomitant]
     Active Substance: SPIRONOLACTONE
  17. BETAMETHASONE [Concomitant]
     Active Substance: BETAMETHASONE
  18. LEVOTHYROXINE [Concomitant]
     Active Substance: LEVOTHYROXINE
  19. PARACETAMOL [Concomitant]
     Active Substance: ACETAMINOPHEN
  20. FUROSEMIDE. [Concomitant]
     Active Substance: FUROSEMIDE

REACTIONS (2)
  - Multi-organ failure [Fatal]
  - Toxic epidermal necrolysis [Fatal]
